FAERS Safety Report 25171106 (Version 1)
Quarter: 2025Q2

REPORT INFORMATION
  Report Type: Spontaneous
  Country: US (occurrence: US)
  Receive Date: 20250408
  Receipt Date: 20250408
  Transmission Date: 20250717
  Serious: No
  Sender: ROCHE
  Company Number: None

PATIENT
  Age: 66 Year
  Sex: Male

DRUGS (7)
  1. CELLCEPT [Suspect]
     Active Substance: MYCOPHENOLATE MOFETIL
     Indication: Granulomatosis with polyangiitis
     Route: 065
  2. METHOTREXATE [Concomitant]
     Active Substance: METHOTREXATE
  3. PREDNISONE [Concomitant]
     Active Substance: PREDNISONE
  4. RITUXIMAB [Concomitant]
     Active Substance: RITUXIMAB
  5. RITUXIMAB [Concomitant]
     Active Substance: RITUXIMAB
  6. RITUXIMAB [Concomitant]
     Active Substance: RITUXIMAB
  7. AVACOPAN [Concomitant]
     Active Substance: AVACOPAN

REACTIONS (2)
  - Feeling jittery [Unknown]
  - Insomnia [Unknown]
